FAERS Safety Report 6313364-9 (Version None)
Quarter: 2009Q3

REPORT INFORMATION
  Report Type: 
  Country: None (occurrence: None)
  Receive Date: 20090814
  Receipt Date: 20090715
  Transmission Date: 20100115
  Serious: Yes (Hospitalization)
  Sender: FDA-Public Use
  Company Number: 230490K09BRA

PATIENT
  Sex: Female

DRUGS (10)
  1. REBIF [Suspect]
     Indication: RELAPSING-REMITTING MULTIPLE SCLEROSIS
     Dosage: 22 MCG, 3 IN 1 WEEKS
     Dates: start: 20081001, end: 20090629
  2. IMURAN [Concomitant]
  3. BACLOFEN [Concomitant]
  4. RANITIDINE [Concomitant]
  5. RETEMIC (OXIBUTININE) (OXYBUTYNIN) [Concomitant]
  6. ENALAPRIL MALEATE [Concomitant]
  7. MACRODANTINA (NITROFURANTOIN) [Concomitant]
  8. METICORTEN TAB [Concomitant]
  9. TYLENOL [Concomitant]
  10. HYOSCINE HBR HYT [Concomitant]

REACTIONS (3)
  - DYSPNOEA [None]
  - HYPOKINESIA [None]
  - MUSCULAR WEAKNESS [None]
